FAERS Safety Report 9275749 (Version 1)
Quarter: 2013Q2

REPORT INFORMATION
  Report Type: Spontaneous
  Country: GB (occurrence: GB)
  Receive Date: 20130507
  Receipt Date: 20130507
  Transmission Date: 20140414
  Serious: Yes (Disabling)
  Sender: FDA-Public Use
  Company Number: GB-SANOFI-AVENTIS-2013SA044004

PATIENT
  Age: 77 Year
  Sex: Male

DRUGS (1)
  1. CLEXANE [Suspect]
     Indication: SURGERY
     Route: 058
     Dates: start: 2012

REACTIONS (2)
  - Haematoma [Not Recovered/Not Resolved]
  - Hypokinesia [Not Recovered/Not Resolved]
